FAERS Safety Report 21888764 (Version 3)
Quarter: 2023Q2

REPORT INFORMATION
  Report Type: Report from Study
  Country: US (occurrence: US)
  Receive Date: 20230120
  Receipt Date: 20230412
  Transmission Date: 20230722
  Serious: Yes (Other)
  Sender: FDA-Public Use
  Company Number: US-ABBVIE-4276959

PATIENT
  Sex: Female

DRUGS (2)
  1. IMBRUVICA [Suspect]
     Active Substance: IBRUTINIB
     Indication: Diffuse large B-cell lymphoma
     Route: 048
     Dates: start: 202210
  2. IMBRUVICA [Suspect]
     Active Substance: IBRUTINIB
     Indication: Diffuse large B-cell lymphoma
     Route: 048
     Dates: start: 20230316

REACTIONS (22)
  - Brain neoplasm [Unknown]
  - Hair growth abnormal [Unknown]
  - Central venous catheterisation [Recovered/Resolved]
  - Infection [Unknown]
  - White blood cell count decreased [Unknown]
  - Nervousness [Unknown]
  - Emotional disorder [Unknown]
  - Depression [Unknown]
  - Pain [Unknown]
  - Caffeine allergy [Unknown]
  - Skin ulcer [Unknown]
  - Catheter site ulcer [Unknown]
  - Photosensitivity reaction [Unknown]
  - Weight increased [Unknown]
  - Central venous catheter removal [Unknown]
  - Dermal cyst [Unknown]
  - Dermal cyst [Recovering/Resolving]
  - Impaired healing [Unknown]
  - Anxiety [Unknown]
  - Speech disorder [Unknown]
  - Gait disturbance [Unknown]
  - Central venous catheterisation [Unknown]
